FAERS Safety Report 20589721 (Version 1)
Quarter: 2022Q1

REPORT INFORMATION
  Report Type: Spontaneous
  Country: CA (occurrence: CA)
  Receive Date: 20220314
  Receipt Date: 20220314
  Transmission Date: 20220423
  Serious: Yes (Hospitalization, Other)
  Sender: FDA-Public Use
  Company Number: CA-JNJFOC-20220322474

PATIENT
  Age: 65 Year
  Sex: Male

DRUGS (3)
  1. REMICADE [Suspect]
     Active Substance: INFLIXIMAB
     Indication: Colitis ulcerative
     Route: 042
  2. PREDNISONE [Concomitant]
     Active Substance: PREDNISONE
  3. VANCOMYCIN [Concomitant]
     Active Substance: VANCOMYCIN
     Indication: Clostridium difficile colitis

REACTIONS (6)
  - Hypoalbuminaemia [Unknown]
  - C-reactive protein increased [Unknown]
  - Condition aggravated [Unknown]
  - Haemoglobin decreased [Unknown]
  - Inappropriate schedule of product administration [Unknown]
  - Off label use [Unknown]
